FAERS Safety Report 7928923-7 (Version None)
Quarter: 2011Q4

REPORT INFORMATION
  Report Type: 
  Country: None (occurrence: None)
  Receive Date: 20111118
  Receipt Date: 20111107
  Transmission Date: 20120403
  Serious: Yes (Hospitalization)
  Sender: FDA-Public Use
  Company Number: US-ROCHE-1012280

PATIENT
  Sex: Female

DRUGS (5)
  1. CARBOPLATIN [Suspect]
     Indication: BREAST CANCER
     Dosage: AUC 2 OVER 1 HOUR ON DAYS 1, 8, AND 15
     Route: 042
     Dates: start: 20050426
  2. IXABEPILONE [Suspect]
     Indication: BREAST CANCER
     Dosage: OVER 1 HOUR ON DAYS 1, 8, AND 15
     Dates: start: 20050426
  3. HERCEPTIN [Suspect]
     Route: 042
  4. HERCEPTIN [Suspect]
     Dosage: MAINTENANCE THERAPY:  CYCLES 7+ (CYCLE = 21 DAYS):
  5. HERCEPTIN [Suspect]
     Indication: BREAST CANCER
     Route: 042
     Dates: start: 20050426

REACTIONS (5)
  - DEHYDRATION [None]
  - VOMITING [None]
  - HEADACHE [None]
  - URINARY TRACT INFECTION [None]
  - ATAXIA [None]
